FAERS Safety Report 7369136-X (Version None)
Quarter: 2011Q1

REPORT INFORMATION
  Report Type: 
  Country: None (occurrence: None)
  Receive Date: 20110323
  Receipt Date: 20110316
  Transmission Date: 20110831
  Serious: Yes (Death)
  Sender: FDA-Public Use
  Company Number: CH-ROCHE-706795

PATIENT
  Sex: Male
  Weight: 85 kg

DRUGS (11)
  1. CAPECITABINE [Suspect]
     Route: 048
     Dates: start: 20100510
  2. METFORMIN [Concomitant]
     Dates: start: 20010101
  3. VALSARTAN [Concomitant]
     Dates: start: 20090611
  4. BEVACIZUMAB [Suspect]
     Dosage: FORM: INFUSION
     Route: 042
     Dates: start: 20100510
  5. BISOPROLOL [Concomitant]
     Dates: start: 20090611
  6. VILDAGLIPTINE [Concomitant]
     Dates: start: 20091204
  7. ASPIRIN [Concomitant]
     Dates: start: 20090611
  8. FINASTERIDE [Concomitant]
     Dates: start: 20091209
  9. SIMVASTATIN [Concomitant]
     Dates: start: 20090611
  10. AMLODIPINE BESYLATE [Concomitant]
     Dates: start: 20090611
  11. IRINOTECAN HYDROCHLORIDE [Suspect]
     Dosage: FORM: INFUSION
     Route: 042
     Dates: start: 20100510

REACTIONS (1)
  - UPPER GASTROINTESTINAL HAEMORRHAGE [None]
